FAERS Safety Report 8106121-4 (Version None)
Quarter: 2012Q1

REPORT INFORMATION
  Report Type: 
  Country: None (occurrence: None)
  Receive Date: 20120202
  Receipt Date: 20120127
  Transmission Date: 20120608
  Serious: No
  Sender: FDA-Public Use
  Company Number: US-PFIZER INC-2012023619

PATIENT
  Sex: Female
  Weight: 61.224 kg

DRUGS (6)
  1. LYRICA [Suspect]
     Indication: NERVE INJURY
  2. LYRICA [Suspect]
     Indication: FIBROMYALGIA
  3. HYDROCHLOROTHIAZIDE [Concomitant]
     Indication: HYPERTENSION
     Dosage: 25 MG DAILY
  4. LYRICA [Suspect]
     Indication: PERIPHERAL NERVE INJURY
  5. LYRICA [Suspect]
     Indication: PAIN
     Dosage: 75 MG, 2X/DAY
     Dates: start: 20110101, end: 20120101
  6. LYRICA [Suspect]
     Indication: MUSCLE SPASMS

REACTIONS (2)
  - HYPERHIDROSIS [None]
  - PAIN [None]
